FAERS Safety Report 14013627 (Version 1)
Quarter: 2017Q3

REPORT INFORMATION
  Report Type: Report from Study
  Country: BR (occurrence: BR)
  Receive Date: 20170926
  Receipt Date: 20170926
  Transmission Date: 20171128
  Serious: Yes (Hospitalization)
  Sender: FDA-Public Use
  Company Number: PHHY2017BR140651

PATIENT
  Sex: Female
  Weight: 42 kg

DRUGS (2)
  1. FORASEQ [Suspect]
     Active Substance: BUDESONIDE\FORMOTEROL FUMARATE
     Indication: CHRONIC OBSTRUCTIVE PULMONARY DISEASE
     Route: 065
  2. ULTIBRO BREEZHALER [Suspect]
     Active Substance: GLYCOPYRRONIUM\INDACATEROL
     Indication: PRODUCT USED FOR UNKNOWN INDICATION
     Dosage: 1 DF (110 MCG OF INDACATEROL AND 50 ?G OF GLYCOPYRRONIUM BROMIDE), QD
     Route: 055

REACTIONS (6)
  - Confusional state [Unknown]
  - Musculoskeletal discomfort [Unknown]
  - Infarction [Unknown]
  - Psychotic disorder [Unknown]
  - Memory impairment [Unknown]
  - Panic disorder [Unknown]
